FAERS Safety Report 5361017-6 (Version None)
Quarter: 2007Q2

REPORT INFORMATION
  Report Type: 
  Country: None (occurrence: None)
  Receive Date: 20070530
  Receipt Date: 20070326
  Transmission Date: 20071010
  Serious: No
  Sender: FDA-Public Use
  Company Number: 2007PV032377

PATIENT
  Age: 71 Year
  Sex: Female
  Weight: 85.7298 kg

DRUGS (6)
  1. BYETTA [Suspect]
     Indication: DIABETES MELLITUS
     Dosage: 5 MCG;BID;SC
     Route: 058
     Dates: start: 20070301
  2. METFORMIN HCL [Concomitant]
  3. GLYBURIDE [Concomitant]
  4. BENICAR [Concomitant]
  5. VERAPAMIL [Concomitant]
  6. PRILOSEC [Concomitant]

REACTIONS (1)
  - WEIGHT INCREASED [None]
